FAERS Safety Report 9800111 (Version 3)
Quarter: 2015Q3

REPORT INFORMATION
  Report Type: Spontaneous
  Country: US (occurrence: US)
  Receive Date: 20140106
  Receipt Date: 20150806
  Transmission Date: 20151125
  Serious: No
  Sender: FDA-Public Use
  Company Number: US-GILEAD-2010-0032505

PATIENT
  Age: 82 Year
  Sex: Female
  Weight: 60.78 kg

DRUGS (13)
  1. ASPIRIN. [Concomitant]
     Active Substance: ASPIRIN
  2. POTASSIUM CHLORIDE. [Concomitant]
     Active Substance: POTASSIUM CHLORIDE
  3. CALCIUM [Concomitant]
     Active Substance: CALCIUM
  4. METOPROLOL [Concomitant]
     Active Substance: METOPROLOL
  5. AMPICILLIN [Concomitant]
     Active Substance: AMPICILLIN
  6. MAGNESIUM [Concomitant]
     Active Substance: MAGNESIUM
  7. COUMADIN [Concomitant]
     Active Substance: WARFARIN SODIUM
  8. PERCOCET [Concomitant]
     Active Substance: ACETAMINOPHEN\OXYCODONE HYDROCHLORIDE
  9. LASIX [Concomitant]
     Active Substance: FUROSEMIDE
  10. LETAIRIS [Suspect]
     Active Substance: AMBRISENTAN
     Indication: PULMONARY ARTERIAL HYPERTENSION
     Route: 048
     Dates: start: 20080506
  11. NITROGLYCERIN. [Concomitant]
     Active Substance: NITROGLYCERIN
  12. CARTIA XT [Concomitant]
     Active Substance: DILTIAZEM HYDROCHLORIDE
  13. ERGOCALCIFEROL/NICOTINAMIDE/RETINOL/ASCORBIC ACID/FOLIC ACID/PANTHENOL/RIBOFLAVIN/THIAMINE HYDROCHLO [Concomitant]

REACTIONS (1)
  - Erythema [Unknown]
